FAERS Safety Report 21793583 (Version 1)
Quarter: 2022Q4

REPORT INFORMATION
  Report Type: Spontaneous
  Country: IR (occurrence: None)
  Receive Date: 20221229
  Receipt Date: 20221229
  Transmission Date: 20230112
  Serious: Yes (Other)
  Sender: FDA-Public Use
  Company Number: IR-MICRO LABS LIMITED-ML2022-06461

PATIENT
  Age: 68 Year
  Sex: Female

DRUGS (9)
  1. MEFENAMIC ACID [Suspect]
     Active Substance: MEFENAMIC ACID
     Indication: Pain
  2. MEFENAMIC ACID [Suspect]
     Active Substance: MEFENAMIC ACID
     Indication: Pyrexia
  3. ASPIRIN [Suspect]
     Active Substance: ASPIRIN
     Indication: Pain
  4. ASPIRIN [Suspect]
     Active Substance: ASPIRIN
     Indication: Pyrexia
  5. AMLODIPINE [Suspect]
     Active Substance: AMLODIPINE BESYLATE
     Indication: Hypertension
  6. TRIAMCINOLONE ACETONIDE [Suspect]
     Active Substance: TRIAMCINOLONE ACETONIDE
     Indication: Hypertension
  7. PRAZOSIN [Suspect]
     Active Substance: PRAZOSIN
     Indication: Hypertension
  8. LANTUS [Concomitant]
     Active Substance: INSULIN GLARGINE
  9. ATORVASTATIN [Concomitant]
     Active Substance: ATORVASTATIN

REACTIONS (1)
  - Renal papillary necrosis [Recovered/Resolved]
